FAERS Safety Report 7032837-7 (Version None)
Quarter: 2010Q4

REPORT INFORMATION
  Report Type: 
  Country: None (occurrence: None)
  Receive Date: 20101004
  Receipt Date: 20100924
  Transmission Date: 20110411
  Serious: Yes (Disabling)
  Sender: FDA-Public Use
  Company Number: 2010AL001780

PATIENT
  Age: 55 Year
  Sex: Female
  Weight: 99.3377 kg

DRUGS (18)
  1. METOCLOPRAMIDE [Suspect]
     Indication: GASTROINTESTINAL DISORDER
     Dosage: 10 MG; QID; PO
     Route: 048
     Dates: start: 20040214, end: 20040304
  2. METOCLOPRAMIDE [Suspect]
     Dosage: 5 MG; ; PO
     Route: 048
     Dates: start: 20030813, end: 20031021
  3. METOCLOPRAMIDE [Suspect]
     Dosage: 10 MG; ; PO
     Route: 048
     Dates: start: 20030520
  4. METOCLOPRAMIDE [Suspect]
     Dosage: 10 MG; ; PO
     Route: 048
     Dates: start: 20030730
  5. LORTAB [Concomitant]
  6. CLINORIL [Concomitant]
  7. LAMISIL [Concomitant]
  8. PREVPAC [Concomitant]
  9. PROTONIX [Concomitant]
  10. BEXTRA [Concomitant]
  11. LEVAQUIN [Concomitant]
  12. OXYCONTIN [Concomitant]
  13. CARBIDOPA + LEVODOPA [Concomitant]
  14. NEURONTIN [Concomitant]
  15. DIAZEPAM [Concomitant]
  16. SULINDAC [Concomitant]
  17. ACIPHEX [Concomitant]
  18. ULTRACET [Concomitant]

REACTIONS (58)
  - ABDOMINAL DISCOMFORT [None]
  - ANGER [None]
  - ANXIETY [None]
  - BACK PAIN [None]
  - BACTERIURIA [None]
  - BLOOD ALKALINE PHOSPHATASE INCREASED [None]
  - BLOOD TRIGLYCERIDES INCREASED [None]
  - BLOOD UREA INCREASED [None]
  - BRADYKINESIA [None]
  - BRONCHITIS [None]
  - CONSTIPATION [None]
  - COUGH [None]
  - DEAFNESS [None]
  - DEFORMITY [None]
  - DEPRESSION [None]
  - DRUG TOXICITY [None]
  - DYSARTHRIA [None]
  - DYSGRAPHIA [None]
  - DYSPEPSIA [None]
  - DYSTONIA [None]
  - EAR PAIN [None]
  - ECONOMIC PROBLEM [None]
  - EMOTIONAL DISTRESS [None]
  - EXTRAPYRAMIDAL DISORDER [None]
  - FAECES DISCOLOURED [None]
  - FLATULENCE [None]
  - FOOT DEFORMITY [None]
  - FRUSTRATION [None]
  - GAIT DISTURBANCE [None]
  - GASTRITIS [None]
  - HAEMANGIOMA [None]
  - HELICOBACTER TEST POSITIVE [None]
  - HEPATIC CYST [None]
  - HYPOCHROMASIA [None]
  - INSOMNIA [None]
  - LIPASE DECREASED [None]
  - LOW DENSITY LIPOPROTEIN INCREASED [None]
  - MALAISE [None]
  - MENTAL DISORDER [None]
  - MICROGRAPHIA [None]
  - MULTIPLE INJURIES [None]
  - MUSCLE TWITCHING [None]
  - NAUSEA [None]
  - NEPHROLITHIASIS [None]
  - NERVOUS SYSTEM DISORDER [None]
  - OROPHARYNGEAL PAIN [None]
  - OSTEOPENIA [None]
  - PAIN [None]
  - PARAESTHESIA [None]
  - PARKINSONISM [None]
  - PLANTAR FASCIITIS [None]
  - PYREXIA [None]
  - QUALITY OF LIFE DECREASED [None]
  - SCOLIOSIS [None]
  - SPLENOMEGALY [None]
  - TARDIVE DYSKINESIA [None]
  - URINARY SEDIMENT PRESENT [None]
  - URINE LEUKOCYTE ESTERASE POSITIVE [None]
